FAERS Safety Report 8798621 (Version 3)
Quarter: 2013Q1

REPORT INFORMATION
  Report Type: Report from Study
  Country: JP (occurrence: JP)
  Receive Date: 20120920
  Receipt Date: 20130122
  Transmission Date: 20140127
  Serious: Yes (Other)
  Sender: FDA-Public Use
  Company Number: JP-VERTEX PHARMACEUTICAL INC.-AE-2012-007235

PATIENT
  Age: 43 Year
  Sex: Male

DRUGS (21)
  1. VX-950 (TELAPREVIR) [Suspect]
     Indication: CHRONIC HEPATITIS C
     Dosage: 2250 MG, QD
     Route: 048
     Dates: start: 20120314, end: 20120411
  2. VX-950 (TELAPREVIR) [Suspect]
     Dosage: 1500 MG, QD
     Route: 048
     Dates: start: 20120412, end: 20120530
  3. RIBAVIRIN [Suspect]
     Indication: CHRONIC HEPATITIS C
     Dosage: 800 MG, QD
     Route: 048
     Dates: start: 20120314, end: 20120404
  4. RIBAVIRIN [Suspect]
     Dosage: 600 MG, QD
     Route: 048
     Dates: start: 20120405, end: 20120411
  5. RIBAVIRIN [Suspect]
     Dosage: 400 MG, QD
     Route: 048
     Dates: start: 20120412, end: 20120418
  6. RIBAVIRIN [Suspect]
     Dosage: 200 MG, QD
     Route: 048
     Dates: start: 20120419, end: 20120502
  7. RIBAVIRIN [Suspect]
     Dosage: 200 MG, QD
     Route: 048
     Dates: start: 20120509, end: 20120522
  8. RIBAVIRIN [Suspect]
     Dosage: 400 MG, QD
     Route: 048
     Dates: start: 20120523, end: 20120703
  9. RIBAVIRIN [Suspect]
     Dosage: 600 MG, QD
     Route: 048
     Dates: start: 20120704, end: 20120710
  10. RIBAVIRIN [Suspect]
     Dosage: 400 MG, QD
     Route: 048
     Dates: start: 20120711, end: 20120821
  11. PEGINTERFERON ALFA-2B [Suspect]
     Indication: CHRONIC HEPATITIS C
     Dosage: 1.5 ?G/KG, UNK
     Route: 058
     Dates: start: 20120314
  12. PEGINTERFERON ALFA-2B [Suspect]
     Dosage: 100 ?G, UNK
     Route: 058
     Dates: end: 20120822
  13. PEGINTERFERON ALFA-2B [Suspect]
     Dosage: 1.0 ?G/KG, UNK
     Route: 058
     Dates: end: 20120821
  14. MAGMITT [Concomitant]
     Dosage: 1980 MG, QD
     Route: 048
     Dates: start: 20120315
  15. SENNOSIDE                          /00571901/ [Concomitant]
     Dosage: 24 MG, QD
     Route: 048
     Dates: start: 20120315
  16. ETODOLAC [Concomitant]
     Dosage: 200 MG, PRN
     Route: 048
     Dates: start: 20120315, end: 20120828
  17. REBAMIPIDE [Concomitant]
     Dosage: 100 MG, PRN
     Route: 048
     Dates: start: 20120315, end: 20120828
  18. RIKKUNSHITO [Concomitant]
     Dosage: 7.5 G, QD
     Route: 048
     Dates: start: 20120411, end: 20120704
  19. ANTEBATE [Concomitant]
     Dosage: UNK, PRN
     Route: 061
     Dates: start: 20120319, end: 20120607
  20. PRIMPERAN [Concomitant]
     Dosage: 15 MG, QD
     Route: 048
     Dates: start: 20120711, end: 20120829
  21. NAUZELIN [Concomitant]
     Dosage: 60 MG, PRN
     Route: 054
     Dates: start: 20120711

REACTIONS (2)
  - White blood cell count decreased [Recovered/Resolved]
  - Haemoglobin decreased [Recovered/Resolved]
